FAERS Safety Report 9726993 (Version 1)
Quarter: 2013Q4

REPORT INFORMATION
  Report Type: Spontaneous
  Country: US (occurrence: US)
  Receive Date: 20131203
  Receipt Date: 20131203
  Transmission Date: 20140711
  Serious: No
  Sender: FDA-Public Use
  Company Number: US-NOVEN-13US007579

PATIENT
  Age: 58 Year
  Sex: Female

DRUGS (5)
  1. FENTANYL [Suspect]
     Indication: PAIN
     Dosage: 100 UG, EVERY 72 HOURS
     Route: 062
     Dates: start: 20130809
  2. FENTANYL [Suspect]
     Indication: MUSCLE SPASMS
  3. LEVETIRACETAM [Concomitant]
     Dosage: UNK
  4. VICODIN [Concomitant]
     Dosage: UNK
  5. VITAMIN B12                        /00056201/ [Concomitant]
     Dosage: UNK

REACTIONS (2)
  - Muscle spasms [Recovered/Resolved]
  - Inadequate analgesia [Recovering/Resolving]
